FAERS Safety Report 5500304-5 (Version None)
Quarter: 2007Q4

REPORT INFORMATION
  Report Type: 
  Country: None (occurrence: None)
  Receive Date: 20071025
  Receipt Date: 20071010
  Transmission Date: 20080405
  Serious: Yes (Hospitalization)
  Sender: FDA-Public Use
  Company Number: 6038679

PATIENT
  Age: 57 Year
  Sex: Female

DRUGS (7)
  1. LODOZ 5 MG/6.25 MG(TABLET) (HYDROCHLOROTHIAZIDE, BISOPROLOL FUMARATE) [Suspect]
     Indication: DRUG USE FOR UNKNOWN INDICATION
     Dosage: 1.00 DOSAGE FORMS (1 DOSAGE FORMS, 1 IN 1 D), ORAL
     Route: 048
     Dates: end: 20070911
  2. REMICADE [Suspect]
     Indication: CROHN'S DISEASE
     Dosage: 8 COURSES BEFORE 7-FEB-07, 6 MG/KG ON 4-SEP-07
  3. RABEPRAZOLE SODIUM [Suspect]
     Indication: DRUG USE FOR UNKNOWN INDICATION
     Dosage: ORAL
     Dates: end: 20070911
  4. ATARAX [Suspect]
     Indication: DRUG USE FOR UNKNOWN INDICATION
     Dosage: 12,5000 MG (12.5 MG,1 IN 1 D), ORAL
     Route: 048
     Dates: end: 20070911
  5. ZOLPIDEM TARTRATE [Suspect]
     Indication: DRUG USE FOR UNKNOWN INDICATION
     Dates: end: 20070911
  6. LOVENOX (HEPARIN-FRACTON, SODIUM SALT) [Concomitant]
  7. AUGMENTIN '125' [Concomitant]

REACTIONS (7)
  - LEUKOPENIA [None]
  - NEUTROPENIA [None]
  - PROTHROMBIN LEVEL DECREASED [None]
  - PROTHROMBIN TIME RATIO DECREASED [None]
  - TACHYCARDIA [None]
  - THROMBOCYTOPENIA [None]
  - UROSEPSIS [None]
